FAERS Safety Report 4703931-8 (Version None)
Quarter: 2005Q2

REPORT INFORMATION
  Report Type: 
  Country: None (occurrence: None)
  Receive Date: 20050630
  Receipt Date: 20050114
  Transmission Date: 20051028
  Serious: Yes (Hospitalization)
  Sender: FDA-Public Use
  Company Number: KP-MERCK-0501USA02763

PATIENT
  Age: 22 Year
  Sex: Male

DRUGS (8)
  1. ELSPAR [Suspect]
     Indication: CHEMOTHERAPY
     Route: 051
     Dates: start: 19950101
  2. DAUNORUBICIN [Concomitant]
     Indication: CHEMOTHERAPY
     Route: 065
     Dates: start: 19950101
  3. VINCRISTINE SULFATE [Concomitant]
     Indication: CHEMOTHERAPY
     Route: 065
     Dates: start: 19950101
  4. PREDNISONE [Concomitant]
     Indication: CHEMOTHERAPY
     Route: 065
     Dates: start: 19950101
  5. ETOPOSIDE [Concomitant]
     Indication: CHEMOTHERAPY
     Route: 065
     Dates: start: 19950101
  6. CYTARABINE [Concomitant]
     Indication: CHEMOTHERAPY
     Route: 065
     Dates: start: 19950101
  7. METHOTREXATE [Concomitant]
     Route: 048
     Dates: start: 19961101
  8. MERCAPTOPURINE [Concomitant]
     Route: 065
     Dates: start: 19961101

REACTIONS (4)
  - CONVULSION [None]
  - PROTEIN S DECREASED [None]
  - SUPERIOR SAGITTAL SINUS THROMBOSIS [None]
  - TRANSIENT ISCHAEMIC ATTACK [None]
